FAERS Safety Report 5024467-3 (Version None)
Quarter: 2006Q2

REPORT INFORMATION
  Report Type: 
  Country: None (occurrence: None)
  Receive Date: 20060613
  Receipt Date: 20060224
  Transmission Date: 20061013
  Serious: Yes (Other)
  Sender: FDA-Public Use
  Company Number: PHEH2006US02638

PATIENT

DRUGS (1)
  1. FEMARA [Suspect]

REACTIONS (1)
  - PULMONARY HYPERTENSION [None]
